FAERS Safety Report 15998664 (Version 4)
Quarter: 2020Q1

REPORT INFORMATION
  Report Type: Spontaneous
  Country: PT (occurrence: PT)
  Receive Date: 20190223
  Receipt Date: 20200201
  Transmission Date: 20200409
  Serious: Yes (Life-Threatening, Hospitalization, Other)
  Sender: FDA-Public Use
  Company Number: PT-ACCORD-109379

PATIENT
  Age: 48 Year
  Sex: Female
  Weight: 77 kg

DRUGS (12)
  1. METFORMIN [Interacting]
     Active Substance: METFORMIN HYDROCHLORIDE
     Indication: WEIGHT DECREASED
     Dosage: 200MG
     Route: 048
     Dates: start: 201708, end: 201804
  2. CENTELLA ASIATICA/CENTELLA ASIATICA EXTRACT [Interacting]
     Active Substance: CENTELLA ASIATICA\HERBALS
     Indication: WEIGHT DECREASED
     Dosage: 200 MG BID
     Route: 048
     Dates: start: 201708, end: 201804
  3. CHROMIUM [Interacting]
     Active Substance: CHROMIC CHLORIDE\CHROMIUM
     Indication: WEIGHT DECREASED
     Dosage: 200 MCG BID
     Route: 048
     Dates: start: 201708, end: 201804
  4. FLECAINIDE [Concomitant]
     Active Substance: FLECAINIDE
     Indication: VENTRICULAR EXTRASYSTOLES
     Route: 048
     Dates: start: 201605
  5. FUROSEMIDE. [Suspect]
     Active Substance: FUROSEMIDE
     Indication: WEIGHT DECREASED
     Dosage: 40 MG BID
     Route: 048
     Dates: start: 201708, end: 201804
  6. BUPROPION/BUPROPION HYDROCHLORIDE [Interacting]
     Active Substance: BUPROPION HYDROCHLORIDE
     Indication: WEIGHT DECREASED
     Dosage: 100 MG BID
     Route: 048
     Dates: start: 201708, end: 201804
  7. TOPIRAMATE. [Interacting]
     Active Substance: TOPIRAMATE
     Indication: WEIGHT DECREASED
     Dosage: 10 MG BID
     Route: 048
     Dates: start: 201708, end: 201804
  8. PHENOLPHTHALEIN [Interacting]
     Active Substance: PHENOLPHTHALEIN
     Indication: WEIGHT DECREASED
     Dosage: 80 MG BID
     Route: 048
     Dates: start: 201708, end: 201804
  9. RHAMNUS PURSHIANA BARK EXTRACT [Interacting]
     Active Substance: RHAMNUS PURSHIANA BARK EXTRACT
     Indication: WEIGHT DECREASED
     Dosage: 100
     Route: 048
     Dates: start: 201708, end: 201804
  10. MINULET [Interacting]
     Active Substance: ETHINYL ESTRADIOL\GESTODENE
     Indication: CONTRACEPTION
     Route: 048
     Dates: start: 201711, end: 201804
  11. ORLISTAT. [Interacting]
     Active Substance: ORLISTAT
     Indication: WEIGHT DECREASED
     Dosage: 50 MG BID
     Route: 048
     Dates: start: 201708, end: 201804
  12. CHLORDIAZEPOXIDE. [Interacting]
     Active Substance: CHLORDIAZEPOXIDE
     Indication: WEIGHT DECREASED
     Dosage: 10MG
     Route: 048
     Dates: start: 201708, end: 201804

REACTIONS (9)
  - Drug interaction [Unknown]
  - Thalamic infarction [Not Recovered/Not Resolved]
  - Headache [Recovering/Resolving]
  - Fatigue [Recovering/Resolving]
  - Cerebral venous thrombosis [Recovering/Resolving]
  - Intentional product misuse [Unknown]
  - Bradyphrenia [Recovering/Resolving]
  - Psychomotor retardation [Recovering/Resolving]
  - Slow response to stimuli [Recovering/Resolving]

NARRATIVE: CASE EVENT DATE: 20180404
